FAERS Safety Report 4315349-0 (Version None)
Quarter: 2004Q1

REPORT INFORMATION
  Report Type: 
  Country: None (occurrence: None)
  Receive Date: 20040309
  Receipt Date: 20040223
  Transmission Date: 20041129
  Serious: Yes (Other)
  Sender: FDA-Public Use
  Company Number: USA031050922

PATIENT
  Age: 5 Year
  Sex: Male

DRUGS (2)
  1. STRATTERA [Suspect]
     Indication: TIC
     Dosage: 25 MG/DAY
     Dates: end: 20031001
  2. CONCERTA [Concomitant]

REACTIONS (2)
  - ELECTROENCEPHALOGRAM ABNORMAL [None]
  - GRAND MAL CONVULSION [None]
